FAERS Safety Report 23573170 (Version 4)
Quarter: 2024Q2

REPORT INFORMATION
  Report Type: Report from Study
  Country: US (occurrence: US)
  Receive Date: 20240228
  Receipt Date: 20240609
  Transmission Date: 20240715
  Serious: Yes (Hospitalization, Other)
  Sender: FDA-Public Use
  Company Number: US-ABBVIE-5648889

PATIENT
  Age: 77 Year
  Sex: Female

DRUGS (4)
  1. SKYRIZI [Suspect]
     Active Substance: RISANKIZUMAB-RZAA
     Indication: Psoriasis
     Dosage: WEEK 12?STRENGTH-150MG/ML
     Route: 058
     Dates: start: 202308, end: 202308
  2. SKYRIZI [Suspect]
     Active Substance: RISANKIZUMAB-RZAA
     Dosage: WEEK 4?STRENGTH-150MG/ML
     Route: 058
     Dates: start: 20230522, end: 20230522
  3. SKYRIZI [Suspect]
     Active Substance: RISANKIZUMAB-RZAA
     Dosage: WEEK 0?STRENGTH-150MG/ML
     Route: 058
     Dates: start: 20230424, end: 20230424
  4. SKYRIZI [Suspect]
     Active Substance: RISANKIZUMAB-RZAA
     Dosage: DISCONTINUED IN 2024
     Route: 058
     Dates: start: 20240208

REACTIONS (5)
  - Limb injury [Unknown]
  - Fall [Recovered/Resolved]
  - Loss of personal independence in daily activities [Unknown]
  - Fall [Unknown]
  - Spinal disorder [Unknown]

NARRATIVE: CASE EVENT DATE: 20231001
